FAERS Safety Report 16443036 (Version 1)
Quarter: 2019Q2

REPORT INFORMATION
  Report Type: Spontaneous
  Country: DE (occurrence: DE)
  Receive Date: 20190617
  Receipt Date: 20190617
  Transmission Date: 20190711
  Serious: Yes (Life-Threatening, Hospitalization, Other)
  Sender: FDA-Public Use
  Company Number: PHHY2019DE137849

PATIENT
  Sex: Male

DRUGS (7)
  1. STELARA [Suspect]
     Active Substance: USTEKINUMAB
     Dosage: 90 MG, UNK
     Route: 064
  2. CALCIUM [Concomitant]
     Active Substance: CALCIUM
     Indication: FOETAL EXPOSURE DURING PREGNANCY
     Dosage: DOSAGE FORM: UNSPECIFIED
     Route: 064
  3. PREDNISOLONE. [Suspect]
     Active Substance: PREDNISOLONE
     Indication: FOETAL EXPOSURE DURING PREGNANCY
     Dosage: 60 MG, UNK (DOSAGE FORM: UNSPECIFIED, DEESCALATING TO 0)
     Route: 064
  4. STELARA [Suspect]
     Active Substance: USTEKINUMAB
     Indication: FOETAL EXPOSURE DURING PREGNANCY
     Dosage: 90 MG, UNK  (8 WEEK)
     Route: 064
     Dates: start: 20171206
  5. VIGANTOLETTEN [Concomitant]
     Active Substance: CHOLECALCIFEROL
     Indication: FOETAL EXPOSURE DURING PREGNANCY
     Dosage: UNK
     Route: 064
  6. FERACCRU [Suspect]
     Active Substance: FERRIC MALTOL
     Indication: FOETAL EXPOSURE DURING PREGNANCY
     Dosage: 60 MG, UNK (DOSAGE FORM: UNSPECIFIED)
     Route: 064
     Dates: start: 20190313
  7. OMEPRAZOLE. [Concomitant]
     Active Substance: OMEPRAZOLE
     Indication: FOETAL EXPOSURE DURING PREGNANCY
     Dosage: 20 MG, UNK (DOSAGE FORM: UNSPECIFIED)
     Route: 064

REACTIONS (8)
  - Respiratory disorder neonatal [Unknown]
  - Cerebral haemorrhage [Unknown]
  - Rotavirus infection [Unknown]
  - Status epilepticus [Unknown]
  - Apnoea [Unknown]
  - Foetal exposure during pregnancy [Unknown]
  - Premature baby [Unknown]
  - Maternal exposure during breast feeding [Unknown]

NARRATIVE: CASE EVENT DATE: 20181016
